FAERS Safety Report 6874668-4 (Version None)
Quarter: 2010Q3

REPORT INFORMATION
  Report Type: 
  Country: None (occurrence: None)
  Receive Date: 20100722
  Receipt Date: 20100710
  Transmission Date: 20110219
  Serious: Yes (Other)
  Sender: FDA-Public Use
  Company Number: 7010597

PATIENT
  Age: 58 Year
  Sex: Female

DRUGS (2)
  1. REBIF [Suspect]
     Indication: PRODUCT USED FOR UNKNOWN INDICATION
     Dates: start: 20070525
  2. AMPYRA [Suspect]
     Dates: start: 20100615

REACTIONS (5)
  - BALANCE DISORDER [None]
  - COORDINATION ABNORMAL [None]
  - DYSPNOEA [None]
  - GAIT DISTURBANCE [None]
  - VISION BLURRED [None]
